FAERS Safety Report 8421545-3 (Version None)
Quarter: 2012Q2

REPORT INFORMATION
  Report Type: 
  Country: None (occurrence: None)
  Receive Date: 20120608
  Receipt Date: 20120604
  Transmission Date: 20120825
  Serious: Yes (Other)
  Sender: FDA-Public Use
  Company Number: US-BAYER-2012-056114

PATIENT
  Age: 19 Year
  Sex: Female

DRUGS (3)
  1. DROSPIRENONE AND ETHINYL ESTRADIOL [Suspect]
     Dosage: UNK
     Dates: start: 20081201, end: 20101001
  2. YAZ [Suspect]
     Dosage: UNK
     Dates: start: 20081201, end: 20101001
  3. YASMIN [Suspect]
     Dosage: UNK
     Dates: start: 20081201, end: 20101001

REACTIONS (6)
  - EMOTIONAL DISTRESS [None]
  - THROMBOSIS [None]
  - PAIN [None]
  - ANXIETY [None]
  - PSYCHOLOGICAL TRAUMA [None]
  - INJURY [None]
